FAERS Safety Report 15164269 (Version 1)
Quarter: 2018Q3

REPORT INFORMATION
  Report Type: Spontaneous
  Country: US (occurrence: US)
  Receive Date: 20180719
  Receipt Date: 20180719
  Transmission Date: 20181010
  Serious: No
  Sender: FDA-Public Use
  Company Number: US-PFIZER INC-2018289416

PATIENT
  Age: 82 Year
  Sex: Female
  Weight: 98.88 kg

DRUGS (3)
  1. DOXEPIN HCL [Suspect]
     Active Substance: DOXEPIN HYDROCHLORIDE
     Indication: BRADYPHRENIA
  2. DOXEPIN HCL [Suspect]
     Active Substance: DOXEPIN HYDROCHLORIDE
     Indication: SLEEP DISORDER
     Dosage: 25 MG, ONCE A DAY (ONE EVERY NIGHT)
  3. DILTIZEM [Concomitant]
     Indication: BLOOD PRESSURE NORMAL
     Dosage: UNK

REACTIONS (1)
  - Hallucination [Unknown]

NARRATIVE: CASE EVENT DATE: 2017
